FAERS Safety Report 21824281 (Version 1)
Quarter: 2023Q1

REPORT INFORMATION
  Report Type: Spontaneous
  Country: US (occurrence: None)
  Receive Date: 20230104
  Receipt Date: 20230104
  Transmission Date: 20230418
  Serious: No
  Sender: FDA-Public Use
  Company Number: None

PATIENT
  Age: 44 Year
  Sex: Female

DRUGS (6)
  1. LANTUS [Suspect]
     Active Substance: INSULIN GLARGINE
  2. BASAGLAR [Suspect]
     Active Substance: INSULIN GLARGINE
  3. GABAPENTIN [Suspect]
     Active Substance: GABAPENTIN
  4. MS CONTIN [Suspect]
     Active Substance: MORPHINE SULFATE
  5. OXYCODONE [Suspect]
     Active Substance: OXYCODONE
  6. REGLAN [Suspect]
     Active Substance: METOCLOPRAMIDE HYDROCHLORIDE

REACTIONS (6)
  - Impaired gastric emptying [None]
  - Nausea [None]
  - Neuropathy peripheral [None]
  - Blister [None]
  - Impaired healing [None]
  - Nerve compression [None]
